FAERS Safety Report 21411290 (Version 5)
Quarter: 2023Q1

REPORT INFORMATION
  Report Type: Spontaneous
  Country: JP (occurrence: JP)
  Receive Date: 20221005
  Receipt Date: 20230216
  Transmission Date: 20230418
  Serious: Yes (Death, Other)
  Sender: FDA-Public Use
  Company Number: JP-ASTELLAS-2022JP014605

PATIENT
  Age: 8 Decade
  Sex: Male

DRUGS (2)
  1. PADCEV [Suspect]
     Active Substance: ENFORTUMAB VEDOTIN-EJFV
     Indication: Transitional cell carcinoma
     Dosage: 1.25 MG/KG, ONCE WEEKLY X 3 AND INTERRUPTION FOR THE 4TH WEEK
     Route: 041
     Dates: start: 20220908
  2. PADCEV [Suspect]
     Active Substance: ENFORTUMAB VEDOTIN-EJFV
     Dosage: 1.25 MG/KG, ONCE WEEKLY X 3 AND INTERRUPTION FOR THE 4TH WEEK
     Route: 041
     Dates: start: 20220926, end: 20230112

REACTIONS (5)
  - Cerebral infarction [Recovered/Resolved]
  - Hyperglycaemia [Recovered/Resolved]
  - Blood sodium decreased [Not Recovered/Not Resolved]
  - Metastases to lung [Not Recovered/Not Resolved]
  - Malignant neoplasm progression [Fatal]

NARRATIVE: CASE EVENT DATE: 20220901
